FAERS Safety Report 21590823 (Version 1)
Quarter: 2022Q4

REPORT INFORMATION
  Report Type: Other
  Country: JP (occurrence: JP)
  Receive Date: 20221114
  Receipt Date: 20221114
  Transmission Date: 20230112
  Serious: Yes (Hospitalization, Other)
  Sender: FDA-Public Use
  Company Number: JP-CHUGAI-2022044752

PATIENT
  Age: 77 Year
  Sex: Male

DRUGS (3)
  1. AVASTIN [Suspect]
     Active Substance: BEVACIZUMAB
     Indication: Rectal cancer
     Dosage: UNKNOWN
     Route: 041
  2. XELODA [Suspect]
     Active Substance: CAPECITABINE
     Indication: Rectal cancer
     Dosage: STRENGTH: 300 MG
     Route: 048
  3. OXALIPLATIN [Concomitant]
     Active Substance: OXALIPLATIN
     Route: 041

REACTIONS (2)
  - Vascular device infection [Unknown]
  - Perforation [Unknown]
